FAERS Safety Report 15338894 (Version 3)
Quarter: 2018Q4

REPORT INFORMATION
  Report Type: Report from Study
  Country: HU (occurrence: HU)
  Receive Date: 20180831
  Receipt Date: 20181109
  Transmission Date: 20190204
  Serious: Yes (Other)
  Sender: FDA-Public Use
  Company Number: HU-UCBSA-2018038826

PATIENT
  Age: 65 Year
  Sex: Female
  Weight: 110 kg

DRUGS (3)
  1. TOPAMAX [Concomitant]
     Active Substance: TOPIRAMATE
     Indication: EPILEPSY
     Dosage: 75/10 MG, 2X/DAY (BID)
     Route: 048
  2. BRIVARACETAM [Suspect]
     Active Substance: BRIVARACETAM
     Indication: EPILEPSY
     Dosage: 150 MG, 2X/DAY (BID)
     Route: 048
     Dates: start: 20180618, end: 20180814
  3. VALSARTAN. [Concomitant]
     Active Substance: VALSARTAN
     Indication: EPILEPSY
     Dosage: 80 MG, ONCE DAILY (QD)
     Route: 048

REACTIONS (5)
  - Seizure [Unknown]
  - Overdose [Unknown]
  - Off label use [Unknown]
  - Dyspnoea [Recovered/Resolved]
  - Neck pain [Recovered/Resolved]

NARRATIVE: CASE EVENT DATE: 2018
